FAERS Safety Report 7356697-X (Version None)
Quarter: 2011Q1

REPORT INFORMATION
  Report Type: 
  Country: None (occurrence: None)
  Receive Date: 20110316
  Receipt Date: 20110311
  Transmission Date: 20110831
  Serious: Yes (Death)
  Sender: FDA-Public Use
  Company Number: PHHY2011US16286

PATIENT
  Sex: Female

DRUGS (2)
  1. ZOMETA [Suspect]
     Dosage: UNK
  2. MORPHINE [Concomitant]

REACTIONS (2)
  - NEOPLASM MALIGNANT [None]
  - BILE DUCT CANCER STAGE IV [None]
